FAERS Safety Report 24868712 (Version 1)
Quarter: 2025Q1

REPORT INFORMATION
  Report Type: Spontaneous
  Country: US (occurrence: None)
  Receive Date: 20250121
  Receipt Date: 20250121
  Transmission Date: 20250409
  Serious: Yes (Hospitalization)
  Sender: FDA-CTU
  Company Number: None

PATIENT
  Age: 67 Year
  Sex: Male

DRUGS (2)
  1. NEORAL [Suspect]
     Active Substance: CYCLOSPORINE
     Indication: Renal transplant
     Route: 048
     Dates: start: 20170418
  2. MELATONIN [Concomitant]
     Active Substance: MELATONIN

REACTIONS (2)
  - Proteus infection [None]
  - Myelitis [None]

NARRATIVE: CASE EVENT DATE: 20250119
